FAERS Safety Report 10009728 (Version 2)
Quarter: 2014Q1

REPORT INFORMATION
  Report Type: Spontaneous
  Country: US (occurrence: US)
  Receive Date: 20140312
  Receipt Date: 20140312
  Transmission Date: 20141002
  Serious: No
  Sender: FDA-Public Use
  Company Number: US-INCYTE CORPORATION-2012IN001893

PATIENT
  Age: 57 Year
  Sex: Male
  Weight: 72.4 kg

DRUGS (15)
  1. JAKAFI [Suspect]
     Indication: MYELOFIBROSIS
     Dosage: 20 MG, BID
     Route: 048
     Dates: start: 20120828
  2. JAKAFI [Suspect]
     Dosage: 5 MG, BID
     Route: 048
  3. JAKAFI [Suspect]
     Dosage: 10 MG, BID
     Route: 048
  4. JAKAFI [Suspect]
     Dosage: 20 MG, BID
     Route: 048
  5. JAKAFI [Suspect]
     Dosage: 15 MG, BID
  6. BACTRIM DS [Concomitant]
  7. ACYCLOVIR [Concomitant]
     Dosage: 800 MG, UNK
  8. PROTONIX [Concomitant]
     Dosage: 40 MG, UNK
  9. PREDNISONE [Concomitant]
     Dosage: 10 MG, UNK
  10. AMLODIPINE [Concomitant]
     Dosage: 2.5 MG, UNK
  11. WARFARIN SODIUM [Concomitant]
     Dosage: 2.5 MG, UNK
  12. FOSAMAX [Concomitant]
     Dosage: 70 MG, UNK
  13. AMBIEN [Concomitant]
     Dosage: 5 MG, UNK
  14. CELEXA [Concomitant]
     Dosage: 40 MG, UNK
  15. MORPHINE [Concomitant]
     Dosage: 30 MG, UNK

REACTIONS (2)
  - Thrombocytopenia [Recovered/Resolved]
  - Drug dose omission [Unknown]
